FAERS Safety Report 20298124 (Version 1)
Quarter: 2022Q1

REPORT INFORMATION
  Report Type: Spontaneous
  Country: CA (occurrence: None)
  Receive Date: 20220105
  Receipt Date: 20220105
  Transmission Date: 20220424
  Serious: Yes (Other)
  Sender: FDA-Public Use
  Company Number: CA-PFIZER INC-2020421600

PATIENT
  Age: 73 Year
  Sex: Male
  Weight: 120 kg

DRUGS (1)
  1. METHOTREXATE [Suspect]
     Active Substance: METHOTREXATE
     Indication: Rheumatoid arthritis
     Route: 065

REACTIONS (3)
  - Drug ineffective [Unknown]
  - Rheumatoid arthritis [Unknown]
  - Drug intolerance [Unknown]
